FAERS Safety Report 9423704 (Version 1)
Quarter: 2013Q3

REPORT INFORMATION
  Report Type: Spontaneous
  Country: GB (occurrence: GB)
  Receive Date: 20130727
  Receipt Date: 20130727
  Transmission Date: 20140515
  Serious: Yes (Life-Threatening, Hospitalization, Disabling)
  Sender: FDA-Public Use
  Company Number: PHHY2013GB079219

PATIENT
  Age: 60 Year
  Sex: Male
  Weight: 95 kg

DRUGS (4)
  1. DICLOFENAC [Suspect]
     Indication: GOUT
     Route: 048
     Dates: start: 201209, end: 201209
  2. DICLOFENAC [Suspect]
     Indication: MYALGIA
  3. CALCICHEW [Concomitant]
  4. PRAVASTATIN [Concomitant]

REACTIONS (8)
  - Malaise [Recovered/Resolved with Sequelae]
  - Cough [Recovered/Resolved with Sequelae]
  - Pulmonary embolism [Recovered/Resolved with Sequelae]
  - Deep vein thrombosis [Recovered/Resolved with Sequelae]
  - Limb discomfort [Not Recovered/Not Resolved]
  - Skin discolouration [Not Recovered/Not Resolved]
  - Local swelling [Not Recovered/Not Resolved]
  - Dyspnoea [Recovered/Resolved with Sequelae]
